FAERS Safety Report 23827044 (Version 1)
Quarter: 2024Q2

REPORT INFORMATION
  Report Type: Spontaneous
  Country: US (occurrence: US)
  Receive Date: 20240507
  Receipt Date: 20240507
  Transmission Date: 20240715
  Serious: Yes (Hospitalization, Disabling, Other)
  Sender: FDA-Public Use
  Company Number: US-SA-SAC20240506000219

PATIENT
  Age: 60 Year
  Sex: Male

DRUGS (1)
  1. DUPIXENT [Suspect]
     Active Substance: DUPILUMAB
     Indication: Asthma
     Dosage: 300 MG, QOW
     Route: 058

REACTIONS (9)
  - Perforated ulcer [Unknown]
  - Dyspepsia [Unknown]
  - Sepsis [Unknown]
  - Weight decreased [Unknown]
  - Movement disorder [Unknown]
  - Impaired work ability [Unknown]
  - Dizziness [Unknown]
  - Fall [Unknown]
  - Dyspnoea [Unknown]
